FAERS Safety Report 5278673-3 (Version None)
Quarter: 2007Q1

REPORT INFORMATION
  Report Type: 
  Country: None (occurrence: None)
  Receive Date: 20061213
  Receipt Date: 20060119
  Transmission Date: 20070707
  Serious: Yes (Hospitalization, Disabling)
  Sender: FDA-Public Use
  Company Number: 2006UW01004

PATIENT
  Age: 45 Year
  Sex: Male

DRUGS (8)
  1. SEROQUEL [Suspect]
     Indication: BIPOLAR DISORDER
     Dosage: 100 MG QD PO
     Route: 048
  2. ZYPREXA [Suspect]
  3. CLONAZEPAM [Concomitant]
  4. LIPITOR /NET/ [Concomitant]
  5. GLIPIZIDE [Concomitant]
  6. TRILEPTAL [Concomitant]
  7. VITAMIN CAP [Concomitant]
  8. ESKALITH [Concomitant]

REACTIONS (1)
  - DIABETES MELLITUS [None]
